FAERS Safety Report 11127739 (Version 2)
Quarter: 2015Q2

REPORT INFORMATION
  Report Type: Report from Study
  Country: CZ (occurrence: CZ)
  Receive Date: 20150521
  Receipt Date: 20150604
  Transmission Date: 20150821
  Serious: No
  Sender: FDA-Public Use
  Company Number: CZ-BIOGENIDEC-2014BI100044

PATIENT
  Sex: Female

DRUGS (1)
  1. TYSABRI [Suspect]
     Active Substance: NATALIZUMAB
     Indication: RELAPSING-REMITTING MULTIPLE SCLEROSIS
     Route: 042
     Dates: start: 20130507, end: 20140603

REACTIONS (6)
  - Intrapartum haemorrhage [Unknown]
  - Anaemia [Unknown]
  - Maternal exposure during pregnancy [Unknown]
  - Bronchitis [Unknown]
  - Multiple sclerosis relapse [Recovered/Resolved]
  - Acute tonsillitis [Unknown]

NARRATIVE: CASE EVENT DATE: 20150205
